FAERS Safety Report 7902273-7 (Version None)
Quarter: 2011Q4

REPORT INFORMATION
  Report Type: 
  Country: None (occurrence: None)
  Receive Date: 20111108
  Receipt Date: 20111102
  Transmission Date: 20120403
  Serious: Yes (Hospitalization)
  Sender: FDA-Public Use
  Company Number: FR-JNJFOC-20111103200

PATIENT
  Age: 85 Year
  Sex: Female

DRUGS (3)
  1. ACETAMINOPHEN [Suspect]
     Indication: ILL-DEFINED DISORDER
     Route: 048
     Dates: start: 20110919, end: 20111006
  2. XARELTO [Suspect]
     Indication: ILL-DEFINED DISORDER
     Route: 065
     Dates: start: 20110919, end: 20111006
  3. ATORVASTATIN CALCIUM [Suspect]
     Indication: DYSLIPIDAEMIA
     Dates: start: 20110919, end: 20111006

REACTIONS (1)
  - HEPATITIS [None]
